FAERS Safety Report 16869481 (Version 1)
Quarter: 2019Q3

REPORT INFORMATION
  Report Type: Spontaneous
  Country: NL (occurrence: NL)
  Receive Date: 20190930
  Receipt Date: 20190930
  Transmission Date: 20191005
  Serious: Yes (Other)
  Sender: FDA-Public Use
  Company Number: NL-009507513-1909NLD010385

PATIENT
  Age: 65 Year
  Sex: Male

DRUGS (2)
  1. PEMBROLIZUMAB. [Suspect]
     Active Substance: PEMBROLIZUMAB
     Indication: MALIGNANT MELANOMA
     Dosage: 1 CYCLE
  2. VEMURAFENIB. [Concomitant]
     Active Substance: VEMURAFENIB
     Indication: MALIGNANT MELANOMA
     Dosage: UNK

REACTIONS (4)
  - CSF lymphocyte count increased [Recovering/Resolving]
  - Neurotoxicity [Recovering/Resolving]
  - Radiculopathy [Recovering/Resolving]
  - Immune-mediated adverse reaction [Recovering/Resolving]
